FAERS Safety Report 18039055 (Version 3)
Quarter: 2020Q3

REPORT INFORMATION
  Report Type: Spontaneous
  Country: US (occurrence: US)
  Receive Date: 20200717
  Receipt Date: 20200729
  Transmission Date: 20201103
  Serious: Yes (Other)
  Sender: FDA-Public Use
  Company Number: US-GLAXOSMITHKLINE-US2020130453

PATIENT
  Sex: Male

DRUGS (1)
  1. SENSODYNE EXTRA WHITENING [Suspect]
     Active Substance: POTASSIUM NITRATE\SODIUM FLUORIDE
     Indication: DENTAL CLEANING
     Dosage: UNK
     Dates: start: 20200707, end: 20200709

REACTIONS (9)
  - Hypoaesthesia [Unknown]
  - Limb injury [Unknown]
  - Nausea [Unknown]
  - Onychalgia [Unknown]
  - Product package associated injury [Unknown]
  - Dizziness [Unknown]
  - Product complaint [Unknown]
  - Nail injury [Unknown]
  - Haemorrhage [Recovered/Resolved]

NARRATIVE: CASE EVENT DATE: 20200709
